FAERS Safety Report 16569597 (Version 1)
Quarter: 2019Q3

REPORT INFORMATION
  Report Type: Spontaneous
  Country: US (occurrence: US)
  Receive Date: 20190715
  Receipt Date: 20190715
  Transmission Date: 20191004
  Serious: Yes (Other)
  Sender: FDA-Public Use
  Company Number: US-UCBSA-2019028999

PATIENT
  Age: 47 Year
  Sex: Female
  Weight: 122 kg

DRUGS (1)
  1. CIMZIA [Suspect]
     Active Substance: CERTOLIZUMAB PEGOL
     Indication: ANKYLOSING SPONDYLITIS
     Dosage: 200 MILLIGRAM, EV 2 WEEKS(QOW)
     Route: 058
     Dates: start: 201904

REACTIONS (3)
  - Upper respiratory tract infection [Unknown]
  - Injection site bruising [Unknown]
  - Diverticulitis [Unknown]

NARRATIVE: CASE EVENT DATE: 2019
